FAERS Safety Report 19924798 (Version 1)
Quarter: 2021Q4

REPORT INFORMATION
  Report Type: Spontaneous
  Country: US (occurrence: US)
  Receive Date: 20211006
  Receipt Date: 20211006
  Transmission Date: 20220303
  Serious: No
  Sender: FDA-Public Use
  Company Number: US-JNJFOC-20210946798

PATIENT
  Age: 50 Year
  Sex: Female

DRUGS (2)
  1. WOMENS ROGAINE [Suspect]
     Active Substance: MINOXIDIL
     Indication: Alopecia
     Dosage: PER DIRECTION - ONE ML AT FIRST TWICE A DAY THROUGH 08-SEP-2021 THEN STOPPED COMPLETELY FOR A WEEK A
     Route: 061
     Dates: start: 20210829, end: 20210908
  2. WOMENS ROGAINE [Suspect]
     Active Substance: MINOXIDIL
     Route: 061
     Dates: start: 202109

REACTIONS (5)
  - Hypersensitivity [Recovering/Resolving]
  - Acne [Recovering/Resolving]
  - Application site paraesthesia [Recovering/Resolving]
  - Paraesthesia [Recovering/Resolving]
  - Application site irritation [Recovering/Resolving]

NARRATIVE: CASE EVENT DATE: 20210902
